FAERS Safety Report 25325200 (Version 1)
Quarter: 2025Q2

REPORT INFORMATION
  Report Type: Report from Study
  Country: CO (occurrence: CO)
  Receive Date: 20250516
  Receipt Date: 20250516
  Transmission Date: 20250717
  Serious: Yes (Other)
  Sender: BIOVITRUM
  Company Number: CO-AstraZeneca-CH-00868904A

PATIENT
  Age: 8 Month
  Sex: Female

DRUGS (1)
  1. PALIVIZUMAB [Suspect]
     Active Substance: PALIVIZUMAB
     Indication: Antiviral prophylaxis
     Route: 030
     Dates: start: 20241108

REACTIONS (3)
  - Pain in extremity [Unknown]
  - Inflammation [Unknown]
  - Bone disorder [Unknown]

NARRATIVE: CASE EVENT DATE: 20250513
